FAERS Safety Report 24091527 (Version 8)
Quarter: 2025Q2

REPORT INFORMATION
  Report Type: Spontaneous
  Country: US (occurrence: US)
  Receive Date: 20240715
  Receipt Date: 20250604
  Transmission Date: 20250717
  Serious: Yes (Hospitalization)
  Sender: VERTEX
  Company Number: US-VERTEX PHARMACEUTICALS-2024-011346

PATIENT
  Sex: Female

DRUGS (2)
  1. TRIKAFTA [Suspect]
     Active Substance: ELEXACAFTOR\IVACAFTOR\TEZACAFTOR
     Indication: Cystic fibrosis
     Dosage: 2 ORANGE TABS IN MORNING AND 1 BLUE TABLET IN THE EVENING
     Route: 048
  2. TRIKAFTA [Suspect]
     Active Substance: ELEXACAFTOR\IVACAFTOR\TEZACAFTOR
     Dosage: SWITCHED DOSE- BLUE IN AM AND 2 ORANGE TAB IN PM
     Route: 048

REACTIONS (8)
  - Hospitalisation [Unknown]
  - Attention deficit hyperactivity disorder [Unknown]
  - Aphasia [Not Recovered/Not Resolved]
  - Anxiety [Unknown]
  - Anger [Unknown]
  - Brain fog [Recovered/Resolved]
  - Memory impairment [Recovering/Resolving]
  - Thought blocking [Recovered/Resolved]
